FAERS Safety Report 12341301 (Version 2)
Quarter: 2016Q2

REPORT INFORMATION
  Report Type: Spontaneous
  Country: RU (occurrence: RU)
  Receive Date: 20160506
  Receipt Date: 20160609
  Transmission Date: 20160815
  Serious: Yes (Death, Hospitalization, Other)
  Sender: FDA-Public Use
  Company Number: RU-BAYER-2016-081362

PATIENT
  Age: 39 Year
  Sex: Male

DRUGS (13)
  1. AVELOX [Suspect]
     Active Substance: MOXIFLOXACIN HYDROCHLORIDE
     Indication: ACUTE RESPIRATORY FAILURE
  2. AVELOX [Suspect]
     Active Substance: MOXIFLOXACIN HYDROCHLORIDE
     Indication: TOXIC SHOCK SYNDROME
  3. AVELOX [Suspect]
     Active Substance: MOXIFLOXACIN HYDROCHLORIDE
     Indication: LEGIONELLA INFECTION
     Dosage: 0.4 G, QD
     Dates: start: 20130805, end: 20130810
  4. SUMAMED [Concomitant]
     Active Substance: AZITHROMYCIN ANHYDROUS
     Indication: ACUTE RESPIRATORY FAILURE
  5. SUMAMED [Concomitant]
     Active Substance: AZITHROMYCIN ANHYDROUS
     Indication: TOXIC SHOCK SYNDROME
  6. AMLODIPINE [Concomitant]
     Active Substance: AMLODIPINE BESYLATE
     Indication: ESSENTIAL HYPERTENSION
     Dosage: UNK
  7. RIFAMPICIN [Concomitant]
     Active Substance: RIFAMPIN
     Indication: LEGIONELLA INFECTION
     Dosage: 1.2 G, QD
     Dates: start: 20130808
  8. SUMAMED [Concomitant]
     Active Substance: AZITHROMYCIN ANHYDROUS
     Indication: LEGIONELLA INFECTION
     Dosage: 0.5 G, QD
     Dates: start: 20130805
  9. RIFAMPICIN [Concomitant]
     Active Substance: RIFAMPIN
     Indication: ACUTE RESPIRATORY FAILURE
  10. RIFAMPICIN [Concomitant]
     Active Substance: RIFAMPIN
     Indication: TOXIC SHOCK SYNDROME
  11. AVELOX [Suspect]
     Active Substance: MOXIFLOXACIN HYDROCHLORIDE
     Indication: PNEUMONIA
  12. SUMAMED [Concomitant]
     Active Substance: AZITHROMYCIN ANHYDROUS
     Indication: PNEUMONIA
  13. RIFAMPICIN [Concomitant]
     Active Substance: RIFAMPIN
     Indication: PNEUMONIA

REACTIONS (15)
  - Hypoxic-ischaemic encephalopathy [None]
  - Brain oedema [None]
  - Pupils unequal [None]
  - Gastrointestinal haemorrhage [None]
  - Septic shock [None]
  - Klebsiella sepsis [None]
  - Pancreatitis chronic [None]
  - Gastrointestinal haemorrhage [None]
  - Ventricular fibrillation [None]
  - Multiple organ dysfunction syndrome [None]
  - Sepsis [None]
  - Cardiac arrest [Fatal]
  - Cardiovascular insufficiency [None]
  - Thrombosis in device [None]
  - Relapsing fever [None]

NARRATIVE: CASE EVENT DATE: 20130808
